FAERS Safety Report 16516969 (Version 1)
Quarter: 2019Q3

REPORT INFORMATION
  Report Type: Spontaneous
  Country: US (occurrence: US)
  Receive Date: 20190522
  Receipt Date: 20190522
  Transmission Date: 20191004
  Serious: No
  Sender: FDA-Public Use
  Company Number: None

PATIENT
  Age: 51 Year
  Sex: Female

DRUGS (1)
  1. HUMIRA [Suspect]
     Active Substance: ADALIMUMAB
     Indication: RHEUMATOID ARTHRITIS
     Dosage: 40MG/0.4ML EVERY 2 WEEKS SUBCUTANEOUSLY
     Route: 058
     Dates: start: 20190219

REACTIONS (2)
  - Gait inability [None]
  - Peripheral swelling [None]

NARRATIVE: CASE EVENT DATE: 20190517
